FAERS Safety Report 4809787-7 (Version None)
Quarter: 2005Q4

REPORT INFORMATION
  Report Type: 
  Country: None (occurrence: None)
  Receive Date: 20051021
  Receipt Date: 20051021
  Transmission Date: 20060501
  Serious: Yes (Hospitalization)
  Sender: FDA-Public Use
  Company Number: None

PATIENT
  Age: 48 Year
  Sex: Female
  Weight: 80.2867 kg

DRUGS (8)
  1. DOCETAXEL [Suspect]
     Indication: BREAST CANCER
     Dosage: 138-140 MG Q 4 WKS  IV
     Route: 042
     Dates: start: 20050805, end: 20051001
  2. CAPECITABINE [Suspect]
     Indication: BREAST CANCER
     Dosage: 1800 MG BID ORALLY
     Route: 048
     Dates: start: 20050806, end: 20051018
  3. ZOFRAN [Concomitant]
  4. PROCHLORPERAZINE [Concomitant]
  5. LORAZEPAM [Concomitant]
  6. IBUPROFEN [Concomitant]
  7. PEPCID [Concomitant]
  8. BENADRYL [Concomitant]

REACTIONS (2)
  - FEBRILE NEUTROPENIA [None]
  - NEUTROPENIA [None]
